FAERS Safety Report 7655990-0 (Version None)
Quarter: 2011Q3

REPORT INFORMATION
  Report Type: 
  Country: None (occurrence: None)
  Receive Date: 20110801
  Receipt Date: 20110719
  Transmission Date: 20111222
  Serious: Yes (Hospitalization)
  Sender: FDA-Public Use
  Company Number: TIF2011A00082

PATIENT
  Age: 37 Year
  Sex: Male

DRUGS (9)
  1. HALCION [Suspect]
     Indication: SEDATION
     Dosage: 25 MG (250 MCG, 1 IN 1 D)
     Route: 048
     Dates: start: 20110301, end: 20110310
  2. BETADINE [Concomitant]
  3. DOXYCYCLINE HYCLATE [Concomitant]
  4. LIXIDOL (KETOROLAC TROMETHAMINE) [Concomitant]
  5. LANSOPRAZOLE [Suspect]
     Indication: PROPHYLAXIS AGAINST GASTROINTESTINAL ULCER
     Dosage: 15 MG( 15MG, 1 IN 1 D)
     Route: 048
     Dates: start: 20110224, end: 20110311
  6. CEFAZOLIN [Suspect]
     Indication: STAPHYLOCOCCAL INFECTION
     Dosage: 1 GM
     Route: 042
     Dates: start: 20110301, end: 20110307
  7. LEVOFLOXACIN [Concomitant]
  8. VOLTAREN [Concomitant]
  9. ENOXAPARIN SODIUM [Concomitant]

REACTIONS (2)
  - CONDITION AGGRAVATED [None]
  - RASH [None]
